FAERS Safety Report 6454672-0 (Version None)
Quarter: 2009Q4

REPORT INFORMATION
  Report Type: 
  Country: None (occurrence: None)
  Receive Date: 20091118
  Receipt Date: 20091105
  Transmission Date: 20100525
  Serious: Yes (Death)
  Sender: FDA-Public Use
  Company Number: 2009US003965

PATIENT
  Age: 39 Year
  Sex: Male

DRUGS (3)
  1. PROGRAF [Suspect]
     Indication: GRAFT VERSUS HOST DISEASE
  2. MYCOPHENOLATE MOFETIL [Concomitant]
  3. PREDNISONE TAB [Concomitant]

REACTIONS (6)
  - CYTOMEGALOVIRUS INFECTION [None]
  - MUCORMYCOSIS [None]
  - NO THERAPEUTIC RESPONSE [None]
  - OBLITERATIVE BRONCHIOLITIS [None]
  - PSEUDOMONAL SEPSIS [None]
  - RESPIRATORY FAILURE [None]
